FAERS Safety Report 25321668 (Version 3)
Quarter: 2025Q4

REPORT INFORMATION
  Report Type: Spontaneous
  Country: US (occurrence: US)
  Receive Date: 20250516
  Receipt Date: 20251114
  Transmission Date: 20260118
  Serious: No
  Sender: STALLERGENES
  Company Number: US-STALCOR-2025-AER-01142

PATIENT
  Age: 11 Year
  Sex: Male

DRUGS (2)
  1. PALFORZIA [Suspect]
     Active Substance: PEANUT
     Indication: Food allergy
     Dosage: 300MG: MAINTENANCE: MIX CONTENTS OF ONE SACHET WELL WITH SEMISOLID FOOD AS DIRECTED AND CONSUME ONCE
     Route: 048
  2. EPINEPHRINE [Concomitant]
     Active Substance: EPINEPHRINE
     Indication: Prophylaxis

REACTIONS (4)
  - Illness [Not Recovered/Not Resolved]
  - Nasopharyngitis [Unknown]
  - Pyrexia [Unknown]
  - Product dose omission issue [Unknown]
